FAERS Safety Report 5816277-1 (Version None)
Quarter: 2008Q3

REPORT INFORMATION
  Report Type: 
  Country: None (occurrence: None)
  Receive Date: 20080721
  Receipt Date: 20080717
  Transmission Date: 20090109
  Serious: Yes (Other)
  Sender: FDA-Public Use
  Company Number: US-BRISTOL-MYERS SQUIBB COMPANY-14133359

PATIENT
  Sex: Female

DRUGS (3)
  1. GLUCOPHAGE [Suspect]
     Dates: start: 20070101
  2. BYETTA [Concomitant]
     Dates: start: 20060101
  3. ACTOS [Concomitant]

REACTIONS (1)
  - RENAL IMPAIRMENT [None]
